FAERS Safety Report 4551280-3 (Version None)
Quarter: 2005Q1

REPORT INFORMATION
  Report Type: 
  Country: None (occurrence: None)
  Receive Date: 20050111
  Receipt Date: 20050111
  Transmission Date: 20050727
  Serious: Yes (Death, Hospitalization)
  Sender: FDA-Public Use
  Company Number: None

PATIENT
  Age: 64 Year
  Sex: Male
  Weight: 123.832 kg

DRUGS (7)
  1. AZACITIDINE  75 MG/M2   PHARMION [Suspect]
     Indication: MYELODYSPLASTIC SYNDROME
     Dosage: 75 MG/M2   DAILY X 7 SUBCUTANEOUS
     Route: 058
     Dates: start: 20050103, end: 20050107
  2. NS + BICARB [Concomitant]
  3. SOLU-MEDROL [Concomitant]
  4. DIALYSIS [Concomitant]
  5. PLATELET AND PRBC TRANSFUSION [Concomitant]
  6. MASK CPAP [Concomitant]
  7. ... [Concomitant]

REACTIONS (7)
  - ANAEMIA [None]
  - CHEST PAIN [None]
  - HAEMOLYSIS [None]
  - RENAL FAILURE ACUTE [None]
  - THROMBOCYTOPENIA [None]
  - TRANSFUSION REACTION [None]
  - UPPER GASTROINTESTINAL HAEMORRHAGE [None]
